FAERS Safety Report 13603401 (Version 1)
Quarter: 2017Q2

REPORT INFORMATION
  Report Type: Spontaneous
  Country: AU (occurrence: AU)
  Receive Date: 20170601
  Receipt Date: 20170601
  Transmission Date: 20170830
  Serious: Yes (Hospitalization)
  Sender: FDA-Public Use
  Company Number: AU-PROMETHEUS LABORATORIES-2017PL000019

PATIENT
  Sex: Male

DRUGS (15)
  1. MORPHINE [Concomitant]
     Active Substance: MORPHINE
  2. ONDANSETRON [Concomitant]
     Active Substance: ONDANSETRON
  3. GABAPENTIN. [Concomitant]
     Active Substance: GABAPENTIN
  4. CEFTRIAXONE. [Concomitant]
     Active Substance: CEFTRIAXONE
  5. KETAMINE [Concomitant]
     Active Substance: KETAMINE
  6. TRAMADOL. [Concomitant]
     Active Substance: TRAMADOL
  7. CETRIZINE [Concomitant]
     Active Substance: CETIRIZINE HYDROCHLORIDE
  8. PARACETAMOL [Concomitant]
     Active Substance: ACETAMINOPHEN
  9. PROLEUKIN [Suspect]
     Active Substance: ALDESLEUKIN
     Indication: NEUROBLASTOMA
     Dosage: UNK UNKNOWN, SEE NARRATIVE
     Route: 065
     Dates: start: 20160405, end: 20160407
  10. UNITUXIN [Suspect]
     Active Substance: DINUTUXIMAB
     Indication: NEUROBLASTOMA
     Dosage: 10 MG, SEE NARRATIVE
     Route: 041
     Dates: start: 20160308
  11. LACTULOSE. [Concomitant]
     Active Substance: LACTULOSE
  12. UNITUXIN [Suspect]
     Active Substance: DINUTUXIMAB
     Dosage: 9 MG, SEE NARRATIVE
     Route: 041
     Dates: start: 20160407, end: 20160407
  13. GM-CSF [Suspect]
     Active Substance: GRANULOCYTE-MACROPHAGE COLONY-STIMULATING FACTOR
     Indication: PRODUCT USED FOR UNKNOWN INDICATION
     Dosage: UNK UNKNOWN, UNK
     Route: 065
     Dates: start: 20160308
  14. UNITUXIN [Suspect]
     Active Substance: DINUTUXIMAB
     Dosage: 8 MG, SEE NARRATIVE
     Route: 041
     Dates: start: 20170309
  15. UNITUXIN [Suspect]
     Active Substance: DINUTUXIMAB
     Dosage: 10 MG, SEE NARRATIVE
     Route: 041
     Dates: start: 20160405, end: 20160406

REACTIONS (3)
  - Hypotension [None]
  - Acute respiratory distress syndrome [Recovered/Resolved]
  - Capillary leak syndrome [Recovered/Resolved]

NARRATIVE: CASE EVENT DATE: 201603
